FAERS Safety Report 21651863 (Version 1)
Quarter: 2022Q4

REPORT INFORMATION
  Report Type: Spontaneous
  Country: US (occurrence: US)
  Receive Date: 20221128
  Receipt Date: 20221128
  Transmission Date: 20230113
  Serious: No
  Sender: FDA-Public Use
  Company Number: US-APOTEX-2022AP009419

PATIENT
  Sex: Female

DRUGS (2)
  1. CALCITONIN SALMON [Suspect]
     Active Substance: CALCITONIN SALMON
     Indication: Hypercalcaemia of malignancy
     Dosage: 1.5 MILLILITER (1 DOSAGE ONLY)
     Route: 058
     Dates: start: 20220615, end: 20220615
  2. ZOLEDRONIC ACID [Concomitant]
     Active Substance: ZOLEDRONIC ACID
     Indication: Product used for unknown indication
     Dosage: UNK
     Route: 042

REACTIONS (4)
  - Incorrect route of product administration [Unknown]
  - Incorrect product formulation administered [Unknown]
  - Product dispensing error [Unknown]
  - No adverse event [Unknown]
